FAERS Safety Report 26073177 (Version 1)
Quarter: 2025Q4

REPORT INFORMATION
  Report Type: Spontaneous
  Country: US (occurrence: US)
  Receive Date: 20251121
  Receipt Date: 20251121
  Transmission Date: 20260119
  Serious: No
  Sender: ELI LILLY AND COMPANY
  Company Number: US-ELI_LILLY_AND_COMPANY-US202511023064

PATIENT
  Age: 61 Year
  Sex: Female

DRUGS (1)
  1. ZEPBOUND [Suspect]
     Active Substance: TIRZEPATIDE
     Indication: Weight control
     Dosage: 15 MG, UNKNOWN
     Route: 058
     Dates: start: 20251016

REACTIONS (7)
  - Chills [Unknown]
  - Pyrexia [Unknown]
  - Pain [Unknown]
  - Back pain [Unknown]
  - Disturbance in attention [Unknown]
  - Mobility decreased [Unknown]
  - Fatigue [Unknown]
